FAERS Safety Report 19248856 (Version 1)
Quarter: 2021Q2

REPORT INFORMATION
  Report Type: Spontaneous
  Country: ES (occurrence: ES)
  Receive Date: 20210512
  Receipt Date: 20210512
  Transmission Date: 20210717
  Serious: Yes (Other)
  Sender: FDA-Public Use
  Company Number: ES-SUN PHARMACEUTICAL INDUSTRIES LTD-2021R1-296029

PATIENT
  Age: 39 Year
  Sex: Female

DRUGS (2)
  1. ENOXAPARIN SODIUM. [Suspect]
     Active Substance: ENOXAPARIN SODIUM
     Indication: HEMIANOPIA HOMONYMOUS
     Dosage: 40 MILLIGRAM, DAILY
     Route: 065
  2. ASPIRIN. [Suspect]
     Active Substance: ASPIRIN
     Indication: HEMIANOPIA HOMONYMOUS
     Dosage: 100 MILLIGRAM, DAILY
     Route: 065

REACTIONS (1)
  - Cerebral ischaemia [Unknown]
